FAERS Safety Report 4263983-9 (Version None)
Quarter: 2004Q1

REPORT INFORMATION
  Report Type: 
  Country: None (occurrence: None)
  Receive Date: 20040102
  Receipt Date: 20031229
  Transmission Date: 20041129
  Serious: Yes (Hospitalization)
  Sender: FDA-Public Use
  Company Number: 03P-150-0244774-00

PATIENT
  Age: 61 Year
  Sex: Male

DRUGS (9)
  1. HUMIRA [Suspect]
     Indication: RHEUMATOID ARTHRITIS
     Dosage: 0.8
     Dates: start: 20030611, end: 20030625
  2. ACETAMINOPHEN [Concomitant]
  3. KETOPROFEN [Concomitant]
  4. TRAMADOL HCL [Concomitant]
  5. LOSARTAN POTASSIUM [Concomitant]
  6. ALENDRONATE SODIUM [Concomitant]
  7. PREDNISOLONE [Concomitant]
  8. LEKOVIT CA [Concomitant]
  9. SALURES K MITE [Concomitant]

REACTIONS (2)
  - CEREBELLAR HAEMORRHAGE [None]
  - DIZZINESS [None]
